FAERS Safety Report 5083727-0 (Version None)
Quarter: 2006Q3

REPORT INFORMATION
  Report Type: 
  Country: None (occurrence: None)
  Receive Date: 20060818
  Receipt Date: 20060807
  Transmission Date: 20061208
  Serious: Yes (Hospitalization)
  Sender: FDA-Public Use
  Company Number: BE-ROCHE-458354

PATIENT
  Age: 49 Year
  Sex: Male
  Weight: 70 kg

DRUGS (12)
  1. ZENAPAX [Suspect]
     Route: 042
     Dates: start: 20051213, end: 20060207
  2. MYCOPHENOLATE MOFETIL [Suspect]
     Route: 048
     Dates: start: 20051213, end: 20051213
  3. MYCOPHENOLATE MOFETIL [Suspect]
     Route: 048
     Dates: start: 20051213, end: 20060604
  4. MYCOPHENOLATE MOFETIL [Suspect]
     Route: 048
     Dates: start: 20060605
  5. SIROLIMUS [Suspect]
     Route: 048
     Dates: start: 20051213
  6. SIROLIMUS [Suspect]
     Route: 048
     Dates: end: 20060612
  7. MEDROL [Concomitant]
     Dosage: 1ST THERAPY: 23 FEB 2006 - 16 MAR 2006. 2ND THERAPY: 22 MAR 2006 - ONGOING
     Dates: start: 20060223
  8. RANITIDINE [Concomitant]
     Dates: start: 20051223
  9. EUSAPRIM [Concomitant]
     Dosage: TOTAL DAILY DOSE = 100. NO UNIT PROVIDED
     Dates: start: 20051214
  10. LANTUS [Concomitant]
     Dates: start: 20051223
  11. ACTRAPID [Concomitant]
     Dates: start: 20051223
  12. AMLODIPINE BESYLATE [Concomitant]
     Dosage: 1ST THERAPY: 13 JAN 2006 - 16 MAR 2006. 2ND THERAPY: 28 MAR 2006 - ONGOING
     Dates: start: 20060113

REACTIONS (17)
  - ANOREXIA [None]
  - BLOOD CREATININE INCREASED [None]
  - CANDIDA SEPSIS [None]
  - CATHETER RELATED INFECTION [None]
  - CLOSTRIDIUM DIFFICILE COLITIS [None]
  - DEVICE RELATED INFECTION [None]
  - HERPES OESOPHAGITIS [None]
  - HYDROPNEUMOTHORAX [None]
  - INTESTINAL OBSTRUCTION [None]
  - LUNG ABSCESS [None]
  - OESOPHAGITIS ULCERATIVE [None]
  - PSEUDOMONAS INFECTION [None]
  - PULMONARY FISTULA [None]
  - SEPSIS [None]
  - SHOCK HAEMORRHAGIC [None]
  - TRANSPLANT REJECTION [None]
  - WOUND INFECTION [None]
